FAERS Safety Report 6472413-8 (Version None)
Quarter: 2009Q4

REPORT INFORMATION
  Report Type: 
  Country: None (occurrence: None)
  Receive Date: 20091201
  Receipt Date: 20091116
  Transmission Date: 20100525
  Serious: Yes (Death, Other)
  Sender: FDA-Public Use
  Company Number: 2009AL007437

PATIENT
  Age: 72 Year
  Sex: Female

DRUGS (2)
  1. VINORELBINE [Suspect]
     Indication: LUNG NEOPLASM MALIGNANT
     Dosage: 30 MG;M**2;IV
     Route: 042
  2. CISPLATIN [Concomitant]

REACTIONS (3)
  - GASTROINTESTINAL DISORDER [None]
  - NEUTROPENIC SEPSIS [None]
  - PANCREATITIS [None]
